FAERS Safety Report 10166247 (Version 1)
Quarter: 2014Q2

REPORT INFORMATION
  Report Type: Spontaneous
  Country: FR (occurrence: FR)
  Receive Date: 20140512
  Receipt Date: 20140512
  Transmission Date: 20141212
  Serious: Yes (Hospitalization)
  Sender: FDA-Public Use
  Company Number: FR-JNJFOC-20140503526

PATIENT
  Age: 64 Year
  Sex: Female

DRUGS (9)
  1. REMICADE [Suspect]
     Indication: CROHN^S DISEASE
     Dosage: 400 TO 1000 MG
     Route: 042
     Dates: start: 200704, end: 201203
  2. HUMIRA [Suspect]
     Indication: PRODUCT USED FOR UNKNOWN INDICATION
     Dosage: 40 MG
     Route: 058
     Dates: start: 20080629, end: 200810
  3. METHOTREXATE [Suspect]
     Indication: PRODUCT USED FOR UNKNOWN INDICATION
     Route: 048
     Dates: start: 2006, end: 2006
  4. AZATHIOPRINE [Suspect]
     Indication: PRODUCT USED FOR UNKNOWN INDICATION
     Route: 048
     Dates: start: 2006, end: 2006
  5. TAHOR [Concomitant]
     Route: 048
     Dates: start: 2006
  6. TAREG [Concomitant]
     Route: 048
     Dates: start: 2006
  7. ACTRAPID [Concomitant]
     Route: 065
  8. LEVEMIR [Concomitant]
     Route: 065
  9. LEVEMIR [Concomitant]
     Route: 065

REACTIONS (3)
  - Hepatocellular carcinoma [Not Recovered/Not Resolved]
  - Proctocolectomy [Unknown]
  - Colostomy [Unknown]
